FAERS Safety Report 5168244-1 (Version None)
Quarter: 2006Q4

REPORT INFORMATION
  Report Type: 
  Country: None (occurrence: None)
  Receive Date: 20061208
  Receipt Date: 20061204
  Transmission Date: 20070319
  Serious: Yes (Other)
  Sender: FDA-Public Use
  Company Number: GB-GLAXOSMITHKLINE-B0449717A

PATIENT
  Age: 44 Year
  Sex: Female
  Weight: 85 kg

DRUGS (5)
  1. LITHIUM CARBONATE [Suspect]
     Indication: DEPRESSION
     Dosage: 600MG UNKNOWN
     Route: 048
     Dates: start: 20030101
  2. OLMETEC [Suspect]
     Indication: HYPERTENSION
     Dosage: 10MG UNKNOWN
     Route: 048
     Dates: start: 20061016
  3. PIOGLITAZONE HCL [Concomitant]
     Dosage: 150MG UNKNOWN
     Route: 048
     Dates: start: 20060101
  4. SIMVASTATIN [Concomitant]
     Dosage: 10MG UNKNOWN
     Route: 048
     Dates: start: 20050701
  5. VENLAFAXINE HCL [Concomitant]
     Indication: DEPRESSION
     Dosage: 150MG UNKNOWN
     Route: 048
     Dates: start: 20030701

REACTIONS (2)
  - ANTIPSYCHOTIC DRUG LEVEL BELOW THERAPEUTIC [None]
  - DRUG INTERACTION [None]
